FAERS Safety Report 10758750 (Version 1)
Quarter: 2015Q1

REPORT INFORMATION
  Report Type: Spontaneous
  Country: US (occurrence: None)
  Receive Date: 20150202
  Receipt Date: 20150202
  Transmission Date: 20150721
  Serious: Yes (Life-Threatening)
  Sender: FDA-Public Use
  Company Number: None

PATIENT
  Age: 65 Year
  Sex: Female
  Weight: 92.99 kg

DRUGS (1)
  1. VIIBRYD [Suspect]
     Active Substance: VILAZODONE HYDROCHLORIDE
     Indication: DEPRESSION
     Dosage: 1 PILL ONCE A DAY
     Route: 048
     Dates: start: 20141229, end: 20150124

REACTIONS (3)
  - Palpitations [None]
  - Thrombosis [None]
  - Dyspnoea [None]

NARRATIVE: CASE EVENT DATE: 20150127
